FAERS Safety Report 10222809 (Version 1)
Quarter: 2014Q2

REPORT INFORMATION
  Report Type: Spontaneous
  Country: US (occurrence: US)
  Receive Date: 20140606
  Receipt Date: 20140606
  Transmission Date: 20141212
  Serious: Yes (Other)
  Sender: FDA-Public Use
  Company Number: US-RB-068253-14

PATIENT
  Sex: Female

DRUGS (2)
  1. SUBOXONE FILM [Suspect]
     Indication: DRUG DEPENDENCE
     Dosage: SUBOXONE FILM; DOSING DETAILS UNKNOWN
     Route: 065
  2. BUPRENORPHINE GENERIC [Suspect]
     Indication: DRUG DEPENDENCE
     Dosage: DOSING DETAILS UNKNOWN
     Route: 065

REACTIONS (2)
  - Maternal exposure during pregnancy [Recovered/Resolved]
  - Abortion spontaneous [Recovered/Resolved]
